FAERS Safety Report 8469612-2 (Version None)
Quarter: 2012Q2

REPORT INFORMATION
  Report Type: 
  Country: None (occurrence: None)
  Receive Date: 20120626
  Receipt Date: 20120621
  Transmission Date: 20120825
  Serious: Yes (Other)
  Sender: FDA-Public Use
  Company Number: US-PFIZER INC-2012150155

PATIENT
  Sex: Male

DRUGS (12)
  1. PRAVASTATIN [Concomitant]
     Dosage: UNK
  2. GLYBURIDE AND METFORMIN HYDROCHLORIDE [Concomitant]
     Dosage: UNK
  3. LISINOPRIL [Concomitant]
     Dosage: UNK
  4. ASPIRIN [Concomitant]
     Dosage: UNK
  5. NIACIN [Concomitant]
     Dosage: UNK
  6. ALPRAZOLAM [Concomitant]
     Dosage: UNK
  7. PLAVIX [Concomitant]
     Dosage: UNK
  8. METOPROLOL [Concomitant]
     Dosage: UNK
  9. RANITIDINE [Concomitant]
     Dosage: UNK
  10. NEURONTIN [Suspect]
     Dosage: 800 MG, 3X/DAY
  11. FINASTERIDE [Concomitant]
     Dosage: UNK
  12. GABAPENTIN [Concomitant]
     Dosage: 800 MG, 3X/DAY
     Route: 048

REACTIONS (5)
  - CARDIAC FAILURE CONGESTIVE [None]
  - DIABETIC NEUROPATHY [None]
  - HYPERTENSION [None]
  - CORONARY ARTERY DISEASE [None]
  - DIABETES MELLITUS [None]
